FAERS Safety Report 25360297 (Version 2)
Quarter: 2025Q2

REPORT INFORMATION
  Report Type: Spontaneous
  Country: US (occurrence: US)
  Receive Date: 20250527
  Receipt Date: 20250531
  Transmission Date: 20250717
  Serious: No
  Sender: GLAXOSMITHKLINE
  Company Number: US-GSK-US2025AMR064340

PATIENT
  Sex: Male

DRUGS (2)
  1. NUCALA [Suspect]
     Active Substance: MEPOLIZUMAB
     Indication: Rhinitis allergic
     Dosage: 100 MG, Q4W
     Dates: start: 202410
  2. NUCALA [Suspect]
     Active Substance: MEPOLIZUMAB
     Indication: Upper respiratory tract infection

REACTIONS (3)
  - Rhinitis allergic [Not Recovered/Not Resolved]
  - Upper respiratory tract infection [Recovered/Resolved]
  - Condition aggravated [Recovered/Resolved]
